FAERS Safety Report 7536381-X (Version None)
Quarter: 2011Q2

REPORT INFORMATION
  Report Type: 
  Country: None (occurrence: None)
  Receive Date: 20110524
  Receipt Date: 20110318
  Transmission Date: 20111010
  Serious: Yes (Other)
  Sender: FDA-Public Use
  Company Number: 029657

PATIENT
  Sex: Female

DRUGS (1)
  1. CIMZIA [Suspect]
     Dosage: (400 MG, FIRST INDUCTION DOSE SUBCUTANEOUS)
     Route: 058

REACTIONS (2)
  - INJECTION SITE EXTRAVASATION [None]
  - INJECTION SITE OEDEMA [None]
